FAERS Safety Report 18440123 (Version 1)
Quarter: 2020Q4

REPORT INFORMATION
  Report Type: Spontaneous
  Country: TW (occurrence: TW)
  Receive Date: 20201029
  Receipt Date: 20201029
  Transmission Date: 20210114
  Serious: Yes (Hospitalization, Other)
  Sender: FDA-Public Use
  Company Number: TW-ACCORD-206463

PATIENT
  Age: 59 Year
  Sex: Female

DRUGS (3)
  1. CISPLATIN. [Suspect]
     Active Substance: CISPLATIN
     Indication: TRANSITIONAL CELL CARCINOMA
     Dosage: CISPLATIN 60 MG/M2 ON DAY 1, FOR 3 WEEKS
     Dates: start: 201805
  2. GEMCITABINE/GEMCITABINE HYDROCHLORIDE [Suspect]
     Active Substance: GEMCITABINE\GEMCITABINE HYDROCHLORIDE
     Indication: TRANSITIONAL CELL CARCINOMA
     Dosage: GEMCITABINE 1000 MG/ M2 ON DAYS 1, 8, AND 15
     Dates: start: 201805
  3. PEMBROLIZUMAB. [Suspect]
     Active Substance: PEMBROLIZUMAB
     Indication: TRANSITIONAL CELL CARCINOMA
     Dosage: PEMBROLIZUMAB 100 MG ON DAY 1
     Dates: start: 201805

REACTIONS (4)
  - Hypertensive emergency [Recovered/Resolved]
  - Abdominal discomfort [Unknown]
  - Generalised tonic-clonic seizure [Recovered/Resolved]
  - Posterior reversible encephalopathy syndrome [Recovered/Resolved]

NARRATIVE: CASE EVENT DATE: 20180921
